FAERS Safety Report 9249373 (Version 1)
Quarter: 2013Q2

REPORT INFORMATION
  Report Type: Spontaneous
  Country: US (occurrence: US)
  Receive Date: 20130423
  Receipt Date: 20130423
  Transmission Date: 20140414
  Serious: Yes (Death)
  Sender: FDA-Public Use
  Company Number: US-GLAXOSMITHKLINE-A0793420A

PATIENT
  Age: 55 Year
  Sex: Male
  Weight: 117.7 kg

DRUGS (1)
  1. AVANDIA [Suspect]
     Indication: DIABETES MELLITUS
     Dosage: 4MG TWICE PER DAY
     Route: 048
     Dates: start: 20040512, end: 20080417

REACTIONS (2)
  - Myocardial infarction [Fatal]
  - Cardiac arrest [Unknown]
